FAERS Safety Report 12392128 (Version 1)
Quarter: 2016Q2

REPORT INFORMATION
  Report Type: Spontaneous
  Country: US (occurrence: US)
  Receive Date: 20160523
  Receipt Date: 20160523
  Transmission Date: 20160815
  Serious: No
  Sender: FDA-Public Use
  Company Number: US-009507513-1605USA004548

PATIENT
  Sex: Female

DRUGS (1)
  1. BELSOMRA [Suspect]
     Active Substance: SUVOREXANT
     Dosage: 60 MG, ABOUT 15 TO 20 MINUTES
     Route: 048

REACTIONS (4)
  - Vision blurred [Unknown]
  - Medication error [Unknown]
  - Overdose [Unknown]
  - Somnolence [Unknown]
